FAERS Safety Report 7209579-8 (Version None)
Quarter: 2011Q1

REPORT INFORMATION
  Report Type: 
  Country: None (occurrence: None)
  Receive Date: 20110103
  Receipt Date: 20110103
  Transmission Date: 20110831
  Serious: Yes (Hospitalization)
  Sender: FDA-Public Use
  Company Number: None

PATIENT
  Age: 66 Year
  Sex: Male
  Weight: 127 kg

DRUGS (2)
  1. WARFARIN SODIUM [Suspect]
     Indication: DEEP VEIN THROMBOSIS
     Dosage: 57.5 MG QWEEK PO
     Route: 048
     Dates: start: 20091201, end: 20091212
  2. ENOXAPARIN SODIUM [Suspect]
     Indication: DEEP VEIN THROMBOSIS
     Dosage: 130 MG BID SQ
     Route: 058
     Dates: start: 20091201, end: 20091212

REACTIONS (7)
  - GASTRITIS EROSIVE [None]
  - FAECES DISCOLOURED [None]
  - GASTROINTESTINAL HAEMORRHAGE [None]
  - DIZZINESS [None]
  - ANAEMIA [None]
  - INTERNATIONAL NORMALISED RATIO ABNORMAL [None]
  - DIARRHOEA [None]
